FAERS Safety Report 13073573 (Version 1)
Quarter: 2016Q4

REPORT INFORMATION
  Report Type: Spontaneous
  Country: US (occurrence: US)
  Receive Date: 20161229
  Receipt Date: 20161229
  Transmission Date: 20170207
  Serious: Yes (Other)
  Sender: FDA-Public Use
  Company Number: US-ALLERGAN-1682486US

PATIENT
  Sex: Male

DRUGS (1)
  1. ANDRODERM [Suspect]
     Active Substance: TESTOSTERONE
     Indication: HORMONE REPLACEMENT THERAPY
     Dosage: UNK
     Route: 062
     Dates: start: 20110725, end: 20120419

REACTIONS (3)
  - Atrial fibrillation [Unknown]
  - Pulmonary embolism [Unknown]
  - Infarction [Unknown]

NARRATIVE: CASE EVENT DATE: 20120127
